FAERS Safety Report 9217863 (Version 1)
Quarter: 2013Q2

REPORT INFORMATION
  Report Type: Report from Study
  Country: JP (occurrence: JP)
  Receive Date: 20130408
  Receipt Date: 20130408
  Transmission Date: 20140414
  Serious: Yes (Other)
  Sender: FDA-Public Use
  Company Number: JP-PFIZER INC-2013105587

PATIENT
  Age: 63 Year
  Sex: Male

DRUGS (3)
  1. FLUOROURACIL [Suspect]
     Indication: COLORECTAL CANCER
     Dosage: UNK
  2. OXALIPLATIN [Suspect]
     Indication: COLORECTAL CANCER
     Dosage: UNK
  3. FOLINIC ACID [Suspect]
     Indication: COLORECTAL CANCER
     Dosage: UNK

REACTIONS (4)
  - Anorectal infection [Unknown]
  - Haemorrhage [Unknown]
  - Thrombocytopenia [Unknown]
  - Leukopenia [Unknown]
